FAERS Safety Report 9216541 (Version 1)
Quarter: 2013Q2

REPORT INFORMATION
  Report Type: Spontaneous
  Country: US (occurrence: None)
  Receive Date: 20130403
  Receipt Date: 20130403
  Transmission Date: 20140414
  Serious: Yes (Hospitalization)
  Sender: FDA-Public Use
  Company Number: DSU-2013-02435

PATIENT
  Age: 72 Year
  Sex: Female

DRUGS (13)
  1. BENICAR (OLMESARTAN MEDOXOMIL) (TABLET) (OLMESARTAN MEDOXOMIL) [Suspect]
     Indication: PRODUCT USED FOR UNKNOWN INDICATION
     Route: 048
  2. SAXAGLIPTIN [Suspect]
     Indication: TYPE 2 DIABETES MELLITUS
     Dates: start: 20100709, end: 20130114
  3. PLACEBO (PLACEBO) [Suspect]
     Indication: TYPE 2 DIABETES MELLITUS
     Dates: start: 20100709, end: 20130114
  4. METFORMIN HCL [Suspect]
     Indication: TYPE 2 DIABETES MELLITUS
  5. LEVEMIR [Suspect]
     Indication: TYPE 2 DIABETES MELLITUS
  6. LISINOPRIL (LISINOPRIL) (LISINOPRIL) [Suspect]
     Indication: PRODUCT USED FOR UNKNOWN INDICATION
  7. VERAPAMIL HCL [Suspect]
     Indication: PRODUCT USED FOR UNKNOWN INDICATION
  8. HYDROCHLOROTHIAZIDE [Suspect]
     Indication: PRODUCT USED FOR UNKNOWN INDICATION
  9. ANGIOTENSIN CONVERTING ENZYME INHIBITORS [Concomitant]
  10. ANGIOTENSIN RECEPTOR BLOCKERS (AGENTS ACTING ON THE RENIN-ANGIOTENSIN SYSTEM) [Concomitant]
  11. ANTICOAGULANTS (WARFARIN SODIUM) (WARFARIN SODIUM) [Concomitant]
  12. BETA BLOCKERS (BETA BLOCKING AGENTS) [Concomitant]
  13. FIBRIC ACID (CLOFIBRATE) (CLOFIBRATE) [Concomitant]

REACTIONS (8)
  - Nausea [None]
  - Vomiting [None]
  - Diarrhoea [None]
  - Decreased appetite [None]
  - Incorrect dose administered [None]
  - Hypotension [None]
  - Blood urea increased [None]
  - Blood creatinine increased [None]
